FAERS Safety Report 23345032 (Version 2)
Quarter: 2024Q4

REPORT INFORMATION
  Report Type: Report from Study
  Country: US (occurrence: US)
  Receive Date: 20231228
  Receipt Date: 20241115
  Transmission Date: 20250114
  Serious: Yes (Other)
  Sender: GENMAB
  Company Number: US-GENMAB-2023-02492

PATIENT
  Age: 84 Year
  Sex: Male

DRUGS (1)
  1. EPKINLY [Suspect]
     Active Substance: EPCORITAMAB-BYSP
     Indication: Follicular lymphoma stage III
     Dosage: UNK
     Route: 065
     Dates: start: 20230928

REACTIONS (2)
  - Follicular lymphoma stage III [Unknown]
  - Off label use [Unknown]

NARRATIVE: CASE EVENT DATE: 20230928
